FAERS Safety Report 6158402-1 (Version None)
Quarter: 2009Q2

REPORT INFORMATION
  Report Type: 
  Country: None (occurrence: None)
  Receive Date: 20090414
  Receipt Date: 20090414
  Transmission Date: 20091009
  Serious: Yes (Life-Threatening, Hospitalization)
  Sender: FDA-Public Use
  Company Number: None

PATIENT
  Age: 25 Year
  Sex: Female
  Weight: 62.2 kg

DRUGS (1)
  1. NUVARING [Suspect]
     Indication: CONTRACEPTION
     Dosage: 1 RING MONTHLY X 3 WEEKS VAG
     Route: 067
     Dates: start: 20070101, end: 20090326

REACTIONS (7)
  - CHILLS [None]
  - COUGH [None]
  - HAEMOPTYSIS [None]
  - INJURY [None]
  - PULMONARY EMBOLISM [None]
  - PYREXIA [None]
  - SYNCOPE [None]
